FAERS Safety Report 24091518 (Version 1)
Quarter: 2024Q3

REPORT INFORMATION
  Report Type: Spontaneous
  Country: US (occurrence: None)
  Receive Date: 20240714
  Receipt Date: 20240714
  Transmission Date: 20241017
  Serious: No
  Sender: Public
  Company Number: None

PATIENT
  Sex: Male
  Weight: 117 kg

DRUGS (6)
  1. MESALAMINE [Suspect]
     Active Substance: MESALAMINE
     Indication: Gastrointestinal disorder
     Dosage: 4 CAPSULES DAILY ORAL ?
     Route: 048
     Dates: start: 20240703, end: 20240705
  2. ATORVASTATIN [Concomitant]
     Active Substance: ATORVASTATIN
  3. LISINPROL [Concomitant]
  4. CARVEDOIL [Concomitant]
  5. FUROSEMIDE [Concomitant]
     Active Substance: FUROSEMIDE
  6. MULTI-VITAMINS [Concomitant]

REACTIONS (1)
  - Influenza like illness [None]

NARRATIVE: CASE EVENT DATE: 20240703
